FAERS Safety Report 15126369 (Version 3)
Quarter: 2018Q3

REPORT INFORMATION
  Report Type: Other
  Country: DE (occurrence: DE)
  Receive Date: 20180710
  Receipt Date: 20180803
  Transmission Date: 20181010
  Serious: Yes (Hospitalization, Other)
  Sender: FDA-Public Use
  Company Number: DE-LUPIN PHARMACEUTICALS INC.-2018-04856

PATIENT

DRUGS (7)
  1. MIRTAZAPINE. [Suspect]
     Active Substance: MIRTAZAPINE
     Indication: PRODUCT USED FOR UNKNOWN INDICATION
     Dosage: UNK
     Route: 065
     Dates: start: 20180409, end: 20180416
  2. DULOXETIN GLENMARK [Suspect]
     Active Substance: DULOXETINE HYDROCHLORIDE
     Indication: MIGRAINE PROPHYLAXIS
     Dosage: 100 MG, QD
     Route: 048
  3. DULOXETIN GLENMARK [Suspect]
     Active Substance: DULOXETINE HYDROCHLORIDE
     Dosage: 30 MG, QD
     Route: 048
     Dates: start: 20180411, end: 20180416
  4. DULOXETIN GLENMARK [Suspect]
     Active Substance: DULOXETINE HYDROCHLORIDE
     Dosage: 30 MG, QD
     Route: 048
  5. TOPIRAMATE. [Suspect]
     Active Substance: TOPIRAMATE
     Indication: PRODUCT USED FOR UNKNOWN INDICATION
     Dosage: UNK
     Route: 065
     Dates: start: 20180409, end: 20180416
  6. DULOXETIN GLENMARK [Suspect]
     Active Substance: DULOXETINE HYDROCHLORIDE
     Indication: MIGRAINE PROPHYLAXIS
     Dosage: 60 MG, OD
     Route: 048
     Dates: end: 20180409
  7. DULOXETIN GLENMARK [Suspect]
     Active Substance: DULOXETINE HYDROCHLORIDE
     Dosage: 120 MG, QD
     Route: 048

REACTIONS (11)
  - Visual impairment [Recovering/Resolving]
  - Sleep disorder [Not Recovered/Not Resolved]
  - Visual impairment [Not Recovered/Not Resolved]
  - Product use in unapproved indication [Unknown]
  - Dizziness [Recovering/Resolving]
  - Hospitalisation [Unknown]
  - Dizziness [Not Recovered/Not Resolved]
  - Sleep disorder [Recovering/Resolving]
  - Drug withdrawal syndrome [Unknown]
  - Hyperhidrosis [Recovering/Resolving]
  - Hyperhidrosis [Not Recovered/Not Resolved]

NARRATIVE: CASE EVENT DATE: 20180409
